FAERS Safety Report 6200051 (Version 2)
Quarter: 2019Q1

REPORT INFORMATION
  Report Type: Report from Study
  Country: FR (occurrence: FR)
  Receive Date: 20061221
  Receipt Date: 20190201
  Transmission Date: 20190418
  Serious: Yes (Disabling)
  Sender: FDA-Public Use
  Company Number: FR-GILEAD-2006-0010816

PATIENT
  Age: 53 Year
  Sex: Male
  Weight: 54 kg

DRUGS (15)
  1. EMTRICITABINE/TENOFOVIR DISOPROXIL FUMARATE [Suspect]
     Active Substance: EMTRICITABINE\TENOFOVIR DISOPROXIL FUMARATE
     Indication: HIV INFECTION
     Dosage: 300 MG, QD
     Route: 048
     Dates: start: 20060615, end: 20060921
  2. RIMIFON [Concomitant]
     Active Substance: ISONIAZID
     Dosage: UNK
  3. PIRILENE [Concomitant]
     Active Substance: PYRAZINAMIDE
     Dosage: UNK
  4. VITAMIN B1 [Concomitant]
     Active Substance: THIAMINE HYDROCHLORIDE
     Dosage: UNK
  5. PENTACARINAT AEROSOL [Concomitant]
     Dosage: UNK
  6. MALOCIDE [Concomitant]
     Dosage: UNK
  7. FUZEON [Suspect]
     Active Substance: ENFUVIRTIDE
     Indication: HIV INFECTION
     Dosage: 90 MG, BID
     Route: 058
     Dates: start: 20060615, end: 20061010
  8. PREZISTA [Suspect]
     Active Substance: DARUNAVIR ETHANOLATE
     Indication: HIV INFECTION
     Dosage: 2 DF, QD
     Route: 048
     Dates: start: 20060615, end: 20061010
  9. LEDERFOLINE [Concomitant]
     Active Substance: LEUCOVORIN CALCIUM
     Dosage: UNK
  10. ANSATIPINE [Concomitant]
     Active Substance: RIFABUTIN
     Dosage: UNK
  11. VITAMIN B6 [Concomitant]
     Active Substance: PYRIDOXINE HYDROCHLORIDE
     Dosage: UNK
  12. MOTILIUM [Concomitant]
     Active Substance: DOMPERIDONE
     Dosage: UNK
  13. TRIZIVIR [Concomitant]
     Active Substance: ABACAVIR SULFATE\LAMIVUDINE\ZIDOVUDINE
     Dosage: UNK
  14. TENOFOVIR DISOPROXIL FUMARATE. [Suspect]
     Active Substance: TENOFOVIR DISOPROXIL FUMARATE
     Indication: HIV INFECTION
     Dosage: 300 MG, QD
     Route: 048
     Dates: start: 20060615, end: 20060921
  15. NORVIR [Concomitant]
     Active Substance: RITONAVIR
     Dosage: UNK

REACTIONS (6)
  - Motor dysfunction [Not Recovered/Not Resolved]
  - Gait disturbance [None]
  - Paraesthesia [Not Recovered/Not Resolved]
  - Condition aggravated [Recovering/Resolving]
  - Aphasia [None]
  - Neuropathy peripheral [Recovering/Resolving]

NARRATIVE: CASE EVENT DATE: 20060615
